FAERS Safety Report 5581071-6 (Version None)
Quarter: 2007Q4

REPORT INFORMATION
  Report Type: 
  Country: None (occurrence: None)
  Receive Date: 20071227
  Receipt Date: 20071213
  Transmission Date: 20080405
  Serious: Yes (Death, Life-Threatening)
  Sender: FDA-Public Use
  Company Number: 20074365

PATIENT
  Sex: Male

DRUGS (1)
  1. LIORESAL [Suspect]
     Indication: MUSCLE SPASTICITY
     Dosage: MCG,DAILY,INTRATHECAL
     Route: 037

REACTIONS (5)
  - COMA [None]
  - DEVICE MALFUNCTION [None]
  - INCORRECT DOSE ADMINISTERED [None]
  - RESPIRATORY DEPRESSION [None]
  - WRONG TECHNIQUE IN DRUG USAGE PROCESS [None]
